FAERS Safety Report 4850430-9 (Version None)
Quarter: 2005Q4

REPORT INFORMATION
  Report Type: 
  Country: None (occurrence: None)
  Receive Date: 20051125
  Receipt Date: 20050707
  Transmission Date: 20060501
  Serious: Yes (Other)
  Sender: FDA-Public Use
  Company Number: 2004044725

PATIENT
  Age: 75 Year
  Sex: Male
  Weight: 105.2345 kg

DRUGS (7)
  1. TIKOSYN [Suspect]
     Indication: ATRIAL FIBRILLATION
     Dosage: 1000 MCG (500 MCG, 2 IN 1 D), ORAL
     Route: 048
     Dates: start: 20040628
  2. HYDROCHLOROTHIAZIDE [Suspect]
     Indication: BLOOD PRESSURE
     Dosage: 25 MG (25 MG, 1 IN 1 D), ORAL
     Route: 048
  3. METOPROLOL SUCCINATE [Concomitant]
  4. COUMADIN [Concomitant]
  5. LEVOTHYROXINE (LEVOTHYOXINE SODIUM) [Concomitant]
  6. DIGOXIN [Concomitant]
  7. SAW PALMETTO (SAW PALMETTO) [Concomitant]

REACTIONS (4)
  - ATRIAL FIBRILLATION [None]
  - MUSCLE TWITCHING [None]
  - POLLAKIURIA [None]
  - URINE OUTPUT INCREASED [None]
